FAERS Safety Report 19577197 (Version 2)
Quarter: 2021Q3

REPORT INFORMATION
  Report Type: Report from Study
  Country: None (occurrence: US)
  Receive Date: 20210719
  Receipt Date: 20210723
  Transmission Date: 20211014
  Serious: Yes (Hospitalization, Other)
  Sender: FDA-Public Use
  Company Number: US-ABBVIE-21K-163-3922854-00

PATIENT
  Age: 68 Year
  Sex: Female
  Weight: 68.1 kg

DRUGS (5)
  1. HUMIRA [Suspect]
     Active Substance: ADALIMUMAB
     Indication: RHEUMATOID ARTHRITIS
     Dosage: CITRATE FREE
     Route: 058
     Dates: start: 2005, end: 202105
  2. HUMIRA [Suspect]
     Active Substance: ADALIMUMAB
     Dosage: CITRATE FREE
     Route: 058
     Dates: start: 20210624
  3. COVID?19 VACCINE [Concomitant]
     Indication: COVID-19 IMMUNISATION
     Dosage: JOHNSON AND JOHNSON
     Route: 030
     Dates: start: 20210303, end: 20210303
  4. ACETAMINOPHEN. [Concomitant]
     Active Substance: ACETAMINOPHEN
     Indication: PRODUCT USED FOR UNKNOWN INDICATION
     Route: 065
  5. OXYCODONE [Concomitant]
     Active Substance: OXYCODONE
     Indication: PRODUCT USED FOR UNKNOWN INDICATION
     Route: 065

REACTIONS (5)
  - Joint swelling [Unknown]
  - Knee arthroplasty [Unknown]
  - Joint instability [Recovered/Resolved]
  - Peripheral swelling [Recovered/Resolved]
  - Arthropathy [Unknown]

NARRATIVE: CASE EVENT DATE: 202104
